FAERS Safety Report 5193559-0 (Version None)
Quarter: 2006Q4

REPORT INFORMATION
  Report Type: 
  Country: None (occurrence: None)
  Receive Date: 20061228
  Receipt Date: 20060816
  Transmission Date: 20070319
  Serious: No
  Sender: FDA-Public Use
  Company Number: PAR-4758

PATIENT
  Age: 55 Year
  Sex: Female

DRUGS (9)
  1. FLUTICASONE PROPIONATE [Suspect]
     Dosage: 2SPR PER DAY
     Route: 045
     Dates: start: 20060428
  2. FLONASE [Suspect]
     Dosage: 2SPR PER DAY
     Route: 045
     Dates: start: 20051101, end: 20060401
  3. LEVAQUIN [Suspect]
     Indication: DRUG USE FOR UNKNOWN INDICATION
     Route: 048
     Dates: start: 20060201
  4. CONCURRENT MEDICATIONS [Concomitant]
  5. PSEUDOEPHEDRINE + ACETAMINOPHEN [Concomitant]
  6. ALBUTEROL [Concomitant]
  7. MUCINEX [Concomitant]
  8. TESSALON [Concomitant]
  9. ZITHROMAX [Concomitant]

REACTIONS (9)
  - DIARRHOEA [None]
  - DRUG INEFFECTIVE [None]
  - EAR CONGESTION [None]
  - HAEMOPTYSIS [None]
  - HEARING DISABILITY [None]
  - HYPERSENSITIVITY [None]
  - PHARMACEUTICAL PRODUCT COMPLAINT [None]
  - PYREXIA [None]
  - SINUS DISORDER [None]
